FAERS Safety Report 18251361 (Version 1)
Quarter: 2020Q3

REPORT INFORMATION
  Report Type: Spontaneous
  Country: HR (occurrence: HR)
  Receive Date: 20200910
  Receipt Date: 20200910
  Transmission Date: 20201103
  Serious: Yes (Other)
  Sender: FDA-Public Use
  Company Number: HR-TEVA-2020-HR-1824475

PATIENT
  Sex: Female

DRUGS (4)
  1. NALGESIN (NAPROXEN SODIUM) [Suspect]
     Active Substance: NAPROXEN SODIUM
     Route: 048
     Dates: start: 202007, end: 202007
  2. LEKADOL [Suspect]
     Active Substance: ACETAMINOPHEN
     Route: 048
     Dates: start: 202007, end: 202007
  3. ALOPURINOL [Suspect]
     Active Substance: ALLOPURINOL
     Route: 048
     Dates: start: 202007, end: 202007
  4. INDAPAMID [Suspect]
     Active Substance: INDAPAMIDE
     Route: 048
     Dates: start: 202007, end: 202007

REACTIONS (1)
  - Suicide attempt [Unknown]

NARRATIVE: CASE EVENT DATE: 202007
